FAERS Safety Report 5718661-3 (Version None)
Quarter: 2008Q2

REPORT INFORMATION
  Report Type: 
  Country: None (occurrence: None)
  Receive Date: 20080425
  Receipt Date: 20080414
  Transmission Date: 20081010
  Serious: Yes (Other)
  Sender: FDA-Public Use
  Company Number: DE-PFIZER INC-2008033189

PATIENT
  Age: 73 Year
  Sex: Male

DRUGS (3)
  1. ZOLOFT [Suspect]
     Indication: DEPRESSIVE SYMPTOM
     Dosage: DAILY DOSE:50MG
     Route: 048
     Dates: start: 20080301, end: 20080409
  2. AMANTADINE HCL [Suspect]
     Route: 048
     Dates: start: 20080101, end: 20080401
  3. CARDIOVASCULAR SYSTEM DRUGS [Concomitant]

REACTIONS (3)
  - BLOOD CREATININE INCREASED [None]
  - HALLUCINATION, VISUAL [None]
  - TREMOR [None]
